FAERS Safety Report 12996988 (Version 2)
Quarter: 2016Q4

REPORT INFORMATION
  Report Type: Spontaneous
  Country: BR (occurrence: BR)
  Receive Date: 20161205
  Receipt Date: 20161221
  Transmission Date: 20170207
  Serious: Yes (Other)
  Sender: FDA-Public Use
  Company Number: BR-ACCORD-046180

PATIENT
  Age: 15 Year
  Sex: Male

DRUGS (4)
  1. METHOTREXATE. [Suspect]
     Active Substance: METHOTREXATE
     Indication: OSTEOSARCOMA
     Dosage: HDMTX 12 G/M2 IN SIX-WEEK CYCLE
     Route: 042
     Dates: start: 20140410
  2. DOXORUBICIN/DOXORUBICIN HYDROCHLORIDE [Concomitant]
     Indication: OSTEOSARCOMA
     Dosage: 37.5 MG/M^2/DAY FOR TWO DAYS
  3. LEUCOVORIN. [Concomitant]
     Active Substance: LEUCOVORIN
     Indication: OSTEOSARCOMA
     Dosage: 15 MG EACH SIX HOURS, STARTED 24 H AFTER THE END OF EVERY CYCLE OF THE HDMTX INFUSION
  4. CISPLATIN. [Concomitant]
     Active Substance: CISPLATIN
     Indication: OSTEOSARCOMA
     Dosage: 60 MG/M^2/DAY FOR TWO DAYS

REACTIONS (2)
  - Brain oedema [Recovered/Resolved]
  - Encephalopathy [Recovered/Resolved]

NARRATIVE: CASE EVENT DATE: 20140421
